FAERS Safety Report 4522368-8 (Version None)
Quarter: 2004Q4

REPORT INFORMATION
  Report Type: 
  Country: None (occurrence: None)
  Receive Date: 20041209
  Receipt Date: 20041130
  Transmission Date: 20050328
  Serious: Yes (Other)
  Sender: FDA-Public Use
  Company Number: GB-GLAXOSMITHKLINE-B0358742A

PATIENT
  Sex: Male

DRUGS (2)
  1. BECOTIDE [Suspect]
  2. VENTOLIN [Suspect]

REACTIONS (3)
  - CONFUSIONAL STATE [None]
  - HYPERSENSITIVITY [None]
  - LOSS OF CONSCIOUSNESS [None]
